FAERS Safety Report 15233163 (Version 4)
Quarter: 2019Q1

REPORT INFORMATION
  Report Type: Spontaneous
  Country: GB (occurrence: GB)
  Receive Date: 20180802
  Receipt Date: 20190219
  Transmission Date: 20190417
  Serious: Yes (Hospitalization, Other)
  Sender: FDA-Public Use
  Company Number: GB-TEVA-2018-GB-932840

PATIENT
  Age: 52 Year
  Sex: Female

DRUGS (6)
  1. DIAZEPAM. [Suspect]
     Active Substance: DIAZEPAM
     Dosage: 10 MILLIGRAM DAILY;
     Route: 065
     Dates: start: 201806
  2. DIAZEPAM. [Suspect]
     Active Substance: DIAZEPAM
     Indication: SEIZURE PROPHYLAXIS
     Dosage: 5 MILLIGRAM DAILY;
     Route: 065
     Dates: start: 20180626
  3. CLOZARIL [Suspect]
     Active Substance: CLOZAPINE
     Indication: SCHIZOPHRENIA
     Dosage: 75 MILLIGRAM DAILY;
     Route: 048
     Dates: start: 20180626
  4. CLOZARIL [Suspect]
     Active Substance: CLOZAPINE
     Route: 048
     Dates: start: 20180626
  5. CLOZARIL [Suspect]
     Active Substance: CLOZAPINE
     Dosage: 200 MILLIGRAM DAILY;
     Route: 048
     Dates: start: 201806
  6. CLOZARIL [Suspect]
     Active Substance: CLOZAPINE
     Route: 048
     Dates: start: 20180524

REACTIONS (15)
  - Polyuria [Unknown]
  - Red cell distribution width increased [Unknown]
  - Platelet count increased [Unknown]
  - Sedation [Not Recovered/Not Resolved]
  - Sepsis [Unknown]
  - Antipsychotic drug level increased [Unknown]
  - Haematocrit decreased [Unknown]
  - Anaemia [Not Recovered/Not Resolved]
  - Pneumonia [Unknown]
  - Red blood cell count decreased [Unknown]
  - Myoclonus [Recovering/Resolving]
  - Neutrophil count increased [Unknown]
  - Mean cell haemoglobin concentration decreased [Unknown]
  - Product dose omission [Unknown]
  - Joint dislocation [Unknown]

NARRATIVE: CASE EVENT DATE: 201805
